FAERS Safety Report 23708243 (Version 1)
Quarter: 2024Q2

REPORT INFORMATION
  Report Type: Report from Study
  Country: US (occurrence: US)
  Receive Date: 20240404
  Receipt Date: 20240404
  Transmission Date: 20240716
  Serious: Yes (Other)
  Sender: FDA-Public Use
  Company Number: US-Eisai-EC-2024-158889

PATIENT
  Age: 70 Year
  Sex: Female

DRUGS (4)
  1. LENVIMA [Suspect]
     Active Substance: LENVATINIB
     Indication: Endometrial cancer
     Route: 048
     Dates: start: 20240130, end: 202402
  2. KEYTRUDA [Concomitant]
     Active Substance: PEMBROLIZUMAB
     Indication: Endometrial cancer
     Dosage: DOSE AND FREQUENCY UNKNOWN
  3. METOPROLOL [Concomitant]
     Active Substance: METOPROLOL
     Indication: Atrial fibrillation
     Dates: start: 2024
  4. METOPROLOL [Concomitant]
     Active Substance: METOPROLOL

REACTIONS (12)
  - Osteonecrosis of jaw [Unknown]
  - Hypertension [Not Recovered/Not Resolved]
  - Tooth infection [Recovering/Resolving]
  - Glossodynia [Unknown]
  - Weight increased [Unknown]
  - COVID-19 [Unknown]
  - Stomatitis [Recovered/Resolved]
  - Pain [Unknown]
  - Gingival pain [Unknown]
  - Headache [Unknown]
  - Rash [Recovered/Resolved]
  - Pruritus [Recovered/Resolved]

NARRATIVE: CASE EVENT DATE: 20240101
